FAERS Safety Report 11190980 (Version 5)
Quarter: 2018Q3

REPORT INFORMATION
  Report Type: Spontaneous
  Country: US (occurrence: US)
  Receive Date: 20150615
  Receipt Date: 20180831
  Transmission Date: 20181010
  Serious: No
  Sender: FDA-Public Use
  Company Number: US-PFIZER INC-2015196774

PATIENT
  Age: 46 Year
  Sex: Female
  Weight: 68 kg

DRUGS (12)
  1. XANAX XR [Suspect]
     Active Substance: ALPRAZOLAM
     Indication: ANXIETY
     Dosage: 2 MG, UNK
  2. XANAX XR [Suspect]
     Active Substance: ALPRAZOLAM
     Indication: RHEUMATOID ARTHRITIS
     Dosage: 2 MG, 4X/DAY
  3. RESTORIL [Concomitant]
     Active Substance: TEMAZEPAM
     Dosage: 30 MG, 1X/DAY (ONE AT NIGHT)
     Route: 048
  4. BENADRYL [Concomitant]
     Active Substance: DIPHENHYDRAMINE HYDROCHLORIDE
     Dosage: UNK
  5. DIOVAN [Concomitant]
     Active Substance: VALSARTAN
     Indication: HYPERTENSION
     Dosage: 80 MG, 1X/DAY
  6. TYLENOL [Concomitant]
     Active Substance: ACETAMINOPHEN
     Dosage: UNK
  7. VITAMIN D2 [Concomitant]
     Active Substance: ERGOCALCIFEROL
     Indication: OSTEOPOROSIS
     Dosage: 50000 IU, MONTHLY
  8. CARDIZEM [Concomitant]
     Active Substance: DILTIAZEM HYDROCHLORIDE
     Indication: SUPRAVENTRICULAR TACHYCARDIA
     Dosage: 30 MG, 2X/DAY
  9. PAXIL [Concomitant]
     Active Substance: PAROXETINE HYDROCHLORIDE
     Dosage: 25 MG, UNK
  10. XANAX XR [Suspect]
     Active Substance: ALPRAZOLAM
     Indication: PANIC DISORDER
     Dosage: 8 MG, DAILY
  11. XANAX XR [Suspect]
     Active Substance: ALPRAZOLAM
     Indication: FIBROMYALGIA
     Dosage: 6 MG, UNK
  12. RESTORIL [Concomitant]
     Active Substance: TEMAZEPAM
     Indication: SLEEP DISORDER
     Dosage: 30 MG, AT BED TIME OCCASIONALLY

REACTIONS (5)
  - Feeling abnormal [Unknown]
  - Pre-existing condition improved [Recovered/Resolved]
  - Raynaud^s phenomenon [Unknown]
  - Therapeutic response unexpected [Recovered/Resolved]
  - Intentional product use issue [Unknown]

NARRATIVE: CASE EVENT DATE: 201506
